FAERS Safety Report 13292824 (Version 3)
Quarter: 2017Q1

REPORT INFORMATION
  Report Type: Spontaneous
  Country: FR (occurrence: FR)
  Receive Date: 20170303
  Receipt Date: 20170320
  Transmission Date: 20170428
  Serious: Yes (Death, Hospitalization, Other)
  Sender: FDA-Public Use
  Company Number: FR-ASTRAZENECA-2017SE23099

PATIENT
  Age: 71 Year
  Sex: Male

DRUGS (20)
  1. PANTOPRAZOLE [Suspect]
     Active Substance: PANTOPRAZOLE SODIUM
     Route: 042
     Dates: start: 20161225, end: 20170119
  2. RIFADIN [Suspect]
     Active Substance: RIFAMPIN
     Route: 065
  3. KARDEGIC [Concomitant]
     Active Substance: ASPIRIN LYSINE
  4. FUROSEMIDE. [Concomitant]
     Active Substance: FUROSEMIDE
  5. QUESTRAN [Suspect]
     Active Substance: CHOLESTYRAMINE
     Route: 048
     Dates: start: 20170116, end: 20170119
  6. LOPERAMIDE [Concomitant]
     Active Substance: LOPERAMIDE
  7. VANCOMYCIN HYDROCHLORIDE. [Suspect]
     Active Substance: VANCOMYCIN HYDROCHLORIDE
  8. PIPERACILLIN AND TAZOBACTAM [Suspect]
     Active Substance: PIPERACILLIN SODIUM\TAZOBACTAM SODIUM
     Indication: SKIN INFECTION
     Dosage: 4G/500MG, 3DF, DAILY
     Route: 042
     Dates: start: 20161204, end: 20170130
  9. LINEZOLID. [Suspect]
     Active Substance: LINEZOLID
     Indication: SKIN INFECTION
     Route: 048
     Dates: start: 20161222, end: 20170110
  10. NEFOPAM [Suspect]
     Active Substance: NEFOPAM
     Route: 042
     Dates: start: 20161202, end: 20170119
  11. RACECADOTRIL [Suspect]
     Active Substance: RACECADOTRIL
     Route: 048
     Dates: start: 20161209, end: 20170119
  12. DIFFU-K [Concomitant]
     Active Substance: POTASSIUM CHLORIDE
  13. LOVENOX [Concomitant]
     Active Substance: ENOXAPARIN SODIUM
     Dates: end: 20170114
  14. CUBICIN [Suspect]
     Active Substance: DAPTOMYCIN
     Route: 042
     Dates: start: 20170110, end: 20170201
  15. ACETAMINOPHEN+TRAMADOL HYDROCHLORIDE [Suspect]
     Active Substance: ACETAMINOPHEN\TRAMADOL HYDROCHLORIDE
     Dosage: 37.5/325 MG, 2 TABLETS FOUR TIMES A DAY
     Route: 048
     Dates: start: 20161201, end: 20170119
  16. ULTRAVIST [Suspect]
     Active Substance: IOPROMIDE
     Dosage: 370 MG OF IODINE PER ML
     Route: 042
     Dates: start: 20170116, end: 20170116
  17. UMULINE ZINC COMPOSE [Concomitant]
  18. SYMBICORT [Suspect]
     Active Substance: BUDESONIDE\FORMOTEROL FUMARATE DIHYDRATE
     Dosage: 400/12, 1 INHALATION DAILY
     Route: 055
     Dates: start: 20161220, end: 20170119
  19. PRIMPERAN [Suspect]
     Active Substance: METOCLOPRAMIDE HYDROCHLORIDE
     Dosage: 10.0MG UNKNOWN
     Route: 048
     Dates: start: 20161224, end: 20170119
  20. DUPHALAC [Concomitant]
     Active Substance: LACTULOSE

REACTIONS (18)
  - Hyperammonaemia [Not Recovered/Not Resolved]
  - Death [Fatal]
  - Restlessness [Unknown]
  - Diffuse alveolar damage [Not Recovered/Not Resolved]
  - Hepatic encephalopathy [Unknown]
  - Generalised oedema [Unknown]
  - Eosinophilic pneumonia [Unknown]
  - Alveolar lung disease [Unknown]
  - Eczema [Unknown]
  - Thrombocytopenia [Unknown]
  - Glomerular filtration rate decreased [Unknown]
  - Sepsis [Unknown]
  - Acute kidney injury [Unknown]
  - Dyspnoea [Not Recovered/Not Resolved]
  - Rectal haemorrhage [Unknown]
  - Interstitial lung disease [Unknown]
  - Rash maculo-papular [Not Recovered/Not Resolved]
  - Eosinophilia [Not Recovered/Not Resolved]

NARRATIVE: CASE EVENT DATE: 20161222
